FAERS Safety Report 7796637-2 (Version None)
Quarter: 2011Q4

REPORT INFORMATION
  Report Type: 
  Country: None (occurrence: None)
  Receive Date: 20111005
  Receipt Date: 20101223
  Transmission Date: 20120403
  Serious: No
  Sender: FDA-Public Use
  Company Number: US-BAYER-2010-008548

PATIENT

DRUGS (1)
  1. CIPRO [Suspect]
     Route: 050

REACTIONS (1)
  - NO ADVERSE EVENT [None]
